FAERS Safety Report 8767335 (Version 1)
Quarter: 2012Q4

REPORT INFORMATION
  Report Type: Report from Study
  Country: DE (occurrence: DE)
  Receive Date: 20120904
  Receipt Date: 20120904
  Transmission Date: 20130627
  Serious: Yes (Hospitalization)
  Sender: FDA-Public Use
  Company Number: DE-GLAXOSMITHKLINE-B0827533A

PATIENT
  Age: 71 Year
  Sex: Female
  Weight: 78 kg

DRUGS (4)
  1. LAPATINIB [Suspect]
     Indication: BREAST CANCER
     Dosage: 750MG Per day
     Route: 048
     Dates: start: 20120809, end: 20120821
  2. DOXORUBICIN HYDROCHLORIDE [Suspect]
     Indication: BREAST CANCER
     Dosage: 37.8MG Weekly
     Route: 042
     Dates: start: 20120809
  3. PACLITAXEL [Suspect]
     Indication: BREAST CANCER
     Dosage: 151MG Weekly
     Route: 042
     Dates: start: 20120809
  4. HERCEPTIN [Suspect]
     Indication: BREAST CANCER
     Dosage: 648MG Every 3 weeks
     Route: 042
     Dates: start: 20120809

REACTIONS (4)
  - General physical health deterioration [Recovered/Resolved]
  - Decreased appetite [None]
  - Diarrhoea [None]
  - Urinary tract infection [None]
